FAERS Safety Report 8064849-9 (Version None)
Quarter: 2012Q1

REPORT INFORMATION
  Report Type: 
  Country: None (occurrence: None)
  Receive Date: 20120124
  Receipt Date: 20120117
  Transmission Date: 20120608
  Serious: No
  Sender: FDA-Public Use
  Company Number: US-BIOGENIDEC-2011BI026717

PATIENT
  Age: 58 Year
  Sex: Female

DRUGS (2)
  1. KLONOPIN [Concomitant]
     Indication: ANXIETY
  2. TYSABRI [Suspect]
     Indication: MULTIPLE SCLEROSIS
     Route: 042
     Dates: start: 20091229, end: 20110705

REACTIONS (4)
  - SYSTEMIC LUPUS ERYTHEMATOSUS [None]
  - BONE PAIN [None]
  - MYALGIA [None]
  - ANXIETY [None]
